FAERS Safety Report 12754728 (Version 1)
Quarter: 2016Q3

REPORT INFORMATION
  Report Type: Spontaneous
  Country: US (occurrence: US)
  Receive Date: 20160915
  Receipt Date: 20160915
  Transmission Date: 20161109
  Serious: No
  Sender: FDA-Public Use
  Company Number: US-SHIRE-US201612574

PATIENT

DRUGS (1)
  1. FOSRENOL [Suspect]
     Active Substance: LANTHANUM CARBONATE
     Indication: HYPERPHOSPHATAEMIA
     Dosage: 1 G, OTHER 2-1 GRAM EVERY MEAL
     Route: 048

REACTIONS (2)
  - Wrong technique in product usage process [Unknown]
  - Blood phosphorus increased [Unknown]
